FAERS Safety Report 7011327-1 (Version None)
Quarter: 2010Q3

REPORT INFORMATION
  Report Type: 
  Country: None (occurrence: None)
  Receive Date: 20100922
  Receipt Date: 20100922
  Transmission Date: 20110219
  Serious: Yes (Death, Life-Threatening, Hospitalization, Disabling, Congenital Anomaly, Other)
  Sender: FDA-Public Use
  Company Number: None

PATIENT
  Age: 46 Year
  Sex: Female
  Weight: 56.6996 kg

DRUGS (1)
  1. COMPOUNDING C-DHEA/TESTOSTERONE 15MG/2MG LOZENGER COMPOUNDED BY THE AP [Suspect]
     Indication: BLOOD TESTOSTERONE DECREASED
     Dosage: ONE -1- LOZENGE DAILY PO
     Route: 048
     Dates: start: 20100826, end: 20100921

REACTIONS (1)
  - THROAT TIGHTNESS [None]
